FAERS Safety Report 15050092 (Version 1)
Quarter: 2018Q2

REPORT INFORMATION
  Report Type: Spontaneous
  Country: US (occurrence: US)
  Receive Date: 20180622
  Receipt Date: 20180622
  Transmission Date: 20180711
  Serious: Yes (Death, Other)
  Sender: FDA-Public Use
  Company Number: US-PFIZER INC-2018249476

PATIENT
  Age: 86 Year
  Sex: Male
  Weight: 75.74 kg

DRUGS (1)
  1. BOSULIF [Suspect]
     Active Substance: BOSUTINIB MONOHYDRATE
     Indication: CHRONIC MYELOID LEUKAEMIA
     Dosage: 400 MG, DAILY
     Route: 048
     Dates: start: 20180511, end: 20180608

REACTIONS (3)
  - Myocardial infarction [Fatal]
  - Pain [Unknown]
  - Ischaemia [Unknown]

NARRATIVE: CASE EVENT DATE: 20180608
